FAERS Safety Report 8962227 (Version 1)
Quarter: 2012Q4

REPORT INFORMATION
  Report Type: 
  Country: US (occurrence: US)
  Receive Date: 20121212
  Receipt Date: 20121212
  Transmission Date: 20130627
  Serious: Yes (Other)
  Sender: FDA-Public Use
  Company Number: PHHY2012US113914

PATIENT
  Age: 71 Year
  Sex: Female

DRUGS (2)
  1. BUFFERIN REGULAR STRENGTH [Suspect]
     Dosage: 1 DF, QD
     Route: 048
  2. HYDROCHLOROTH [Concomitant]
     Dosage: 12.5 mg, QD

REACTIONS (7)
  - Rotator cuff syndrome [Not Recovered/Not Resolved]
  - Cholelithiasis [Recovered/Resolved]
  - Euphoric mood [Recovered/Resolved]
  - Blood cholesterol increased [Not Recovered/Not Resolved]
  - Hypertension [Not Recovered/Not Resolved]
  - Incorrect drug administration duration [Unknown]
  - Drug effect delayed [Not Recovered/Not Resolved]
